FAERS Safety Report 7633241-0 (Version None)
Quarter: 2011Q3

REPORT INFORMATION
  Report Type: 
  Country: None (occurrence: None)
  Receive Date: 20110725
  Receipt Date: 20110715
  Transmission Date: 20111222
  Serious: Yes (Death)
  Sender: FDA-Public Use
  Company Number: CO-ROCHE-790316

PATIENT
  Sex: Male

DRUGS (2)
  1. MIRCERA [Suspect]
     Dosage: FREQUENCY: Q30 DYAS
     Route: 058
     Dates: start: 20100309
  2. PREDNISOLONE [Concomitant]
     Indication: ANTIINFLAMMATORY THERAPY

REACTIONS (1)
  - SEPSIS [None]
